FAERS Safety Report 8579669-6 (Version None)
Quarter: 2012Q3

REPORT INFORMATION
  Report Type: 
  Country: None (occurrence: None)
  Receive Date: 20120706
  Receipt Date: 20120706
  Transmission Date: 20120928
  Serious: No
  Sender: FDA-Public Use
  Company Number: None

PATIENT
  Sex: Male
  Weight: 46.9473 kg

DRUGS (10)
  1. MARAVIROC [Suspect]
     Indication: MENTAL DISORDER
     Dosage: 150MG BID ORAL - 047
     Route: 048
     Dates: start: 20120519, end: 20120615
  2. KALETRA [Concomitant]
  3. LOPERAMIDE [Concomitant]
  4. PRAVASTATIN [Concomitant]
  5. VIDEX [Concomitant]
  6. TRUVADA [Concomitant]
  7. ACYCLOVIR [Concomitant]
  8. SUDAGEST [Concomitant]
  9. CALCIUM/VIT D [Concomitant]
  10. NASACORT [Concomitant]

REACTIONS (3)
  - WEIGHT DECREASED [None]
  - VOMITING [None]
  - EATING DISORDER [None]
